FAERS Safety Report 10616161 (Version 1)
Quarter: 2014Q4

REPORT INFORMATION
  Report Type: Spontaneous
  Country: US (occurrence: None)
  Receive Date: 20141125
  Receipt Date: 20141125
  Transmission Date: 20150529
  Serious: No
  Sender: FDA-Public Use
  Company Number: None

PATIENT
  Age: 32 Year
  Sex: Male
  Weight: 64.41 kg

DRUGS (1)
  1. CONCERTA [Suspect]
     Active Substance: METHYLPHENIDATE HYDROCHLORIDE
     Indication: ATTENTION DEFICIT/HYPERACTIVITY DISORDER
     Dosage: 2 PILLS IN MORNING
     Route: 048
     Dates: start: 20140523, end: 20140723

REACTIONS (6)
  - Product substitution issue [None]
  - Amnesia [None]
  - Product formulation issue [None]
  - Hyperhidrosis [None]
  - Product quality issue [None]
  - Disturbance in attention [None]

NARRATIVE: CASE EVENT DATE: 20140606
